FAERS Safety Report 14755618 (Version 2)
Quarter: 2018Q2

REPORT INFORMATION
  Report Type: Spontaneous
  Country: FR (occurrence: FR)
  Receive Date: 20180413
  Receipt Date: 20180507
  Transmission Date: 20180711
  Serious: Yes (Other)
  Sender: FDA-Public Use
  Company Number: FR-MERCK KGAA-2045726

PATIENT
  Age: 69 Year
  Sex: Female
  Weight: 52 kg

DRUGS (11)
  1. SPASFON LYOC [Concomitant]
     Active Substance: PHLOROGLUCINOL
  2. NOVOTHYROX [Suspect]
     Active Substance: LEVOTHYROXINE SODIUM
     Indication: PAPILLARY THYROID CANCER
     Route: 048
     Dates: start: 201704, end: 201711
  3. CACIT [Concomitant]
     Active Substance: CALCIUM\VITAMIN D
  4. NATISPRAY [Concomitant]
     Active Substance: NITROGLYCERIN
  5. DUOPLAVIN(NEFAZAN COMPUESTO) [Concomitant]
  6. CRESTOR [Concomitant]
     Active Substance: ROSUVASTATIN CALCIUM
  7. LERCAN [Concomitant]
     Active Substance: LERCANIDIPINE
  8. NOCTAMIDE [Concomitant]
     Active Substance: LORMETAZEPAM
  9. TEMERIT DUO(NEBICARD-H) [Concomitant]
  10. UVEDOSE [Concomitant]
     Active Substance: CHOLECALCIFEROL
  11. UN-ALFA [Concomitant]
     Active Substance: ALFACALCIDOL

REACTIONS (9)
  - Vulvovaginal mycotic infection [Recovering/Resolving]
  - Fatigue [Recovering/Resolving]
  - Muscle spasms [Recovering/Resolving]
  - Alopecia [Recovering/Resolving]
  - Dry eye [Recovering/Resolving]
  - Nausea [Recovering/Resolving]
  - Weight decreased [Recovering/Resolving]
  - Blood thyroid stimulating hormone normal [Recovered/Resolved]
  - Abdominal pain [Recovering/Resolving]

NARRATIVE: CASE EVENT DATE: 201704
